FAERS Safety Report 23715595 (Version 3)
Quarter: 2024Q2

REPORT INFORMATION
  Report Type: Report from Study
  Country: US (occurrence: US)
  Receive Date: 20240408
  Receipt Date: 20240620
  Transmission Date: 20240715
  Serious: Yes (Other)
  Sender: FDA-Public Use
  Company Number: US-ABBVIE-5708206

PATIENT
  Age: 42 Year
  Sex: Female

DRUGS (17)
  1. SKYRIZI [Suspect]
     Active Substance: RISANKIZUMAB-RZAA
     Indication: Psoriatic arthropathy
     Route: 058
     Dates: start: 20240228
  2. SKYRIZI [Suspect]
     Active Substance: RISANKIZUMAB-RZAA
     Route: 058
     Dates: end: 202310
  3. OMEPRAZOLE [Concomitant]
     Active Substance: DONEPEZIL HYDROCHLORIDE\OMEPRAZOLE\OMEPRAZOLE MAGNESIUM
     Indication: Product used for unknown indication
     Dosage: FREQUENCY TEXT: DAILY
     Route: 048
  4. WELLBUTRIN [Concomitant]
     Active Substance: BUPROPION HYDROCHLORIDE
     Indication: Product used for unknown indication
     Dosage: FREQUENCY TEXT: DAILY
     Route: 048
     Dates: start: 20220101
  5. TAZORAC [Concomitant]
     Active Substance: TAZAROTENE
     Indication: Product used for unknown indication
  6. HYDROCHLOROTHIAZIDE\VALSARTAN [Concomitant]
     Active Substance: HYDROCHLOROTHIAZIDE\VALSARTAN
     Indication: Product used for unknown indication
  7. MONTELUKAST SODIUM [Concomitant]
     Active Substance: MONTELUKAST SODIUM
     Indication: Product used for unknown indication
     Dosage: FREQUENCY TEXT: DAILY
  8. VOLTAREN [Concomitant]
     Active Substance: DICLOFENAC SODIUM
     Indication: Product used for unknown indication
     Dosage: 1% GEL
  9. Continuous positive air pressure (CPAP) [Concomitant]
     Indication: Product used for unknown indication
     Dosage: FREQUENCY TEXT: DAILY
  10. INHALERIN [Concomitant]
     Indication: Product used for unknown indication
     Dosage: 108-90 BASE--2 PUFFS EVERY 6 HOURS AS NEEDED FOR WHEEZING AND PLEURISY
  11. CLINDAMYCIN [Concomitant]
     Active Substance: CLINDAMYCIN
     Indication: Product used for unknown indication
     Dosage: 1 PERCENT GEL?FREQUENCY TEXT: DAILY
  12. CLOBETASOL [Concomitant]
     Active Substance: CLOBETASOL
     Indication: Product used for unknown indication
     Dosage: 0.5%
  13. Valstartan [Concomitant]
     Indication: Product used for unknown indication
     Dosage: 160/12.5?FREQUENCY TEXT: DAILY
     Dates: start: 20220101
  14. MELOXICAM [Concomitant]
     Active Substance: MELOXICAM
     Indication: Product used for unknown indication
     Dosage: FREQUENCY TEXT: DAILY
     Route: 048
  15. CALCIPOTRIENE [Concomitant]
     Active Substance: CALCIPOTRIENE
     Indication: Product used for unknown indication
     Dosage: 1% GEL
  16. TAR-EX SHAMPOO [Concomitant]
     Indication: Product used for unknown indication
     Dosage: SHAMPOO HEAD PSORIASIS
  17. ZOFRAN [Concomitant]
     Active Substance: ONDANSETRON HYDROCHLORIDE
     Indication: Nausea
     Dosage: AS NEED WHEN NAUSEA-DISOLVABLE TABLET?FORM STRENGTH: 4 MILLIGRAM

REACTIONS (6)
  - Hysterectomy [Recovered/Resolved]
  - Psoriatic arthropathy [Unknown]
  - Tendon pain [Unknown]
  - Seasonal allergy [Unknown]
  - Psoriasis [Unknown]
  - Respiratory disorder [Unknown]

NARRATIVE: CASE EVENT DATE: 20240212
